FAERS Safety Report 17978535 (Version 3)
Quarter: 2025Q2

REPORT INFORMATION
  Report Type: Report from Study
  Country: GB (occurrence: GB)
  Receive Date: 20200703
  Receipt Date: 20250410
  Transmission Date: 20250717
  Serious: Yes (Other)
  Sender: ALIMERA
  Company Number: GB-ALIMERA SCIENCES LIMITED-GB-IL-2017-003853

PATIENT
  Age: 69 Year
  Sex: Male

DRUGS (2)
  1. ILUVIEN [Suspect]
     Active Substance: FLUOCINOLONE ACETONIDE
     Indication: Diabetic retinal oedema
     Dosage: 0.25 MICROGRAM, QD-LEFT EYE
     Route: 031
     Dates: start: 20150304
  2. METFORMIN [Concomitant]
     Active Substance: METFORMIN HYDROCHLORIDE
     Indication: Type 2 diabetes mellitus

REACTIONS (6)
  - Photocoagulation [Recovered/Resolved]
  - Glaucoma drainage device placement [Recovered/Resolved]
  - Intraocular pressure increased [Not Recovered/Not Resolved]
  - Glaucoma [Unknown]
  - Trabeculoplasty [Recovered/Resolved]
  - Optic disc disorder [Not Recovered/Not Resolved]

NARRATIVE: CASE EVENT DATE: 20171021
